FAERS Safety Report 20934068 (Version 1)
Quarter: 2022Q2

REPORT INFORMATION
  Report Type: Spontaneous
  Country: US (occurrence: US)
  Receive Date: 20220608
  Receipt Date: 20220608
  Transmission Date: 20220720
  Serious: Yes (Other)
  Sender: FDA-Public Use
  Company Number: US-ALLERGAN-2218710US

PATIENT
  Sex: Male

DRUGS (3)
  1. URSODIOL [Suspect]
     Active Substance: URSODIOL
     Indication: Hepatocellular carcinoma
     Dosage: 300 MG, BID
     Route: 065
  2. CYCLOSPORINE [Suspect]
     Active Substance: CYCLOSPORINE
     Indication: Hepatocellular carcinoma
     Dosage: 100 MG, BID
     Route: 065
  3. MYCOPHENOLATE MOFETIL [Suspect]
     Active Substance: MYCOPHENOLATE MOFETIL
     Indication: Hepatocellular carcinoma
     Dosage: 500 MG, BID
     Route: 065

REACTIONS (3)
  - Mantle cell lymphoma [Recovering/Resolving]
  - Accidental underdose [Unknown]
  - Off label use [Unknown]
